FAERS Safety Report 25919093 (Version 1)
Quarter: 2025Q4

REPORT INFORMATION
  Report Type: Spontaneous
  Country: EU (occurrence: EU)
  Receive Date: 20251014
  Receipt Date: 20251014
  Transmission Date: 20260117
  Serious: Yes (Hospitalization, Other)
  Sender: COSETTE PHARMACEUTICALS INC
  Company Number: EU-MACLEODS PHARMA-MAC2025055316

PATIENT

DRUGS (2)
  1. AZOR [Suspect]
     Active Substance: AMLODIPINE BESYLATE\OLMESARTAN MEDOXOMIL
     Indication: Hypertension
     Route: 065
     Dates: end: 20230831
  2. AZOR [Suspect]
     Active Substance: AMLODIPINE BESYLATE\OLMESARTAN MEDOXOMIL
     Route: 065
     Dates: start: 20240207

REACTIONS (6)
  - Colitis microscopic [Recovered/Resolved]
  - Hypokalaemia [Recovered/Resolved]
  - Fall [Unknown]
  - Metabolic acidosis [Recovered/Resolved]
  - Acute kidney injury [Unknown]
  - Sprue-like enteropathy [Recovered/Resolved]
